FAERS Safety Report 5220490-4 (Version None)
Quarter: 2007Q1

REPORT INFORMATION
  Report Type: 
  Country: None (occurrence: None)
  Receive Date: 20070126
  Receipt Date: 20070117
  Transmission Date: 20070707
  Serious: Yes (Hospitalization)
  Sender: FDA-Public Use
  Company Number: FR-JNJFOC-20070104136

PATIENT
  Age: 45 Year
  Sex: Female

DRUGS (1)
  1. REMICADE [Suspect]
     Indication: PUSTULAR PSORIASIS
     Dosage: TOTAL OF 3 INFUSIONS ADMINISTERED.
     Route: 042

REACTIONS (3)
  - CYTOMEGALOVIRUS HEPATITIS [None]
  - DRUG INEFFECTIVE [None]
  - JAUNDICE [None]
